FAERS Safety Report 17214635 (Version 1)
Quarter: 2020Q1

REPORT INFORMATION
  Report Type: Spontaneous
  Country: US (occurrence: US)
  Receive Date: 20191228
  Receipt Date: 20191228
  Transmission Date: 20200409
  Serious: Yes (Life-Threatening, Hospitalization, Other)
  Sender: FDA-Public Use
  Company Number: None

PATIENT
  Age: 42 Year
  Sex: Female
  Weight: 43 kg

DRUGS (1)
  1. METHYLNALTREXONE BROMIDE [Suspect]
     Active Substance: METHYLNALTREXONE BROMIDE
     Indication: CONSTIPATION
     Dosage: ?          OTHER FREQUENCY:ONCE;?
     Route: 058
     Dates: start: 20190719, end: 20190719

REACTIONS (14)
  - Renal transplant [None]
  - Large intestine perforation [None]
  - Gallbladder rupture [None]
  - Cholecystitis [None]
  - Ascites [None]
  - Pericardial fibrosis [None]
  - Abdominal pain lower [None]
  - Peritonitis [None]
  - Duodenal perforation [None]
  - Drug ineffective [None]
  - Tracheostomy [None]
  - Ileus [None]
  - Cholelithiasis [None]
  - Gastrointestinal wall thickening [None]

NARRATIVE: CASE EVENT DATE: 20190719
